FAERS Safety Report 6212388-X (Version None)
Quarter: 2009Q2

REPORT INFORMATION
  Report Type: 
  Country: None (occurrence: None)
  Receive Date: 20090603
  Receipt Date: 20071008
  Transmission Date: 20091009
  Serious: Yes (Other)
  Sender: FDA-Public Use
  Company Number: US-ASTRAZENECA-2006UW20985

PATIENT
  Age: 21546 Day
  Sex: Female
  Weight: 64 kg

DRUGS (40)
  1. SEROQUEL [Suspect]
     Indication: SLEEP DISORDER
     Dosage: 100-600 MG
     Route: 048
     Dates: start: 20011003
  2. SEROQUEL [Suspect]
     Indication: DEPRESSION
     Dosage: 100-600 MG
     Route: 048
     Dates: start: 20011003
  3. SEROQUEL [Suspect]
     Route: 048
     Dates: start: 20070125
  4. SEROQUEL [Suspect]
     Route: 048
     Dates: start: 20070125
  5. AMBIEN [Concomitant]
     Dosage: 5-10 MG, AT NIGHT
     Dates: start: 20010213
  6. RESTORIL [Concomitant]
     Dates: start: 20010113
  7. BUSPAR [Concomitant]
     Dosage: 10-15 MG, THREE TIMES A DAY
     Dates: start: 20011004
  8. NORVASC [Concomitant]
     Dosage: 5-10 MG
     Dates: start: 19990905
  9. PREDNISOLONE AC 1 PERCENT [Concomitant]
     Dates: start: 20011004
  10. HUMULIN 70/30 [Concomitant]
     Dosage: 100 U/ML, 10 M
     Dates: start: 20001201
  11. HYDROCODONE BITARTRATE + ACETAMINOPHEN [Concomitant]
     Dosage: 5/500, 10/500
     Dates: start: 20010213
  12. CELEBREX [Concomitant]
     Indication: ARTHRALGIA
     Route: 048
     Dates: start: 20010110
  13. LANOXIN [Concomitant]
     Dosage: 0.25-0.125 MG
     Dates: start: 19990905
  14. TRICOR [Concomitant]
     Dosage: 67-200 MG
     Dates: start: 19990905
  15. ACETAMINOPHEN [Concomitant]
     Dosage: 325-500 MG
     Dates: start: 19990905
  16. NEXIUM [Concomitant]
     Dosage: 20-40 MG
     Dates: start: 20021008
  17. HUMULIN R [Concomitant]
     Dosage: 100 U/ML, 10 M
     Dates: start: 19990905
  18. VISTARIL [Concomitant]
     Dosage: 25-50 MG
     Dates: start: 19990905
  19. HUMALOG MIX 75/25 [Concomitant]
     Dates: start: 20021104
  20. BENZTROPINE MES [Concomitant]
     Dates: start: 20030105
  21. RISPERDAL [Concomitant]
     Dosage: 1-3 MG
     Dates: start: 20021104
  22. ACTOS [Concomitant]
     Dosage: 15-30 MG
     Dates: start: 20010110
  23. ACCUPRIL [Concomitant]
     Dosage: 5-20 MG, TWO TIMES A DAY
     Route: 048
     Dates: start: 20000923
  24. LEXAPRO [Concomitant]
     Dates: start: 20030220
  25. PLAVIX [Concomitant]
     Dates: start: 20010210
  26. NITROGLYCERIN [Concomitant]
     Dosage: 0.2 MG/ML, 50 MG/ML
     Dates: start: 20050905
  27. ASPIRIN [Concomitant]
     Dosage: 81-325 MG
     Dates: start: 19990904
  28. ENDOCET [Concomitant]
     Dosage: 325-5 MG
     Dates: start: 20030331
  29. PROPOXYPHENE HCL CAP [Concomitant]
     Dosage: 100-650 MG
     Dates: start: 20010207
  30. OMNIPAQUE 140 [Concomitant]
     Dosage: 300 MG/ML, 150 ML
     Dates: start: 20031007
  31. DEMEROL [Concomitant]
     Dosage: 50 MG/ML, 5 M
     Dates: start: 20031007
  32. LORAZEPAM [Concomitant]
     Dates: start: 20021104
  33. PHENERGAN [Concomitant]
     Dates: start: 20030331
  34. ZYPREXA [Concomitant]
     Dosage: 7.5-15 MG
     Dates: start: 20010911
  35. ISOSORBIDE MONO [Concomitant]
     Dates: start: 20001002
  36. FLUOXETINE HCL [Concomitant]
     Dates: start: 20021008
  37. TOPROL-XL [Concomitant]
     Dates: start: 20021104
  38. PANLOR DC [Concomitant]
     Dates: start: 20030401
  39. TRIAMTERENE AND HYDROCHLOROTHIAZIDE [Concomitant]
     Dosage: 37.5/25
     Dates: start: 20030321
  40. ZANTAC [Concomitant]
     Dates: start: 19961031

REACTIONS (4)
  - DIABETES MELLITUS [None]
  - DIABETES MELLITUS INADEQUATE CONTROL [None]
  - DIABETIC NEUROPATHY [None]
  - TYPE 1 DIABETES MELLITUS [None]
